FAERS Safety Report 5157137-1 (Version None)
Quarter: 2006Q4

REPORT INFORMATION
  Report Type: 
  Country: None (occurrence: None)
  Receive Date: 20061115
  Receipt Date: 20061110
  Transmission Date: 20070319
  Serious: Yes (Other)
  Sender: FDA-Public Use
  Company Number: US-2006-028361

PATIENT
  Age: 51 Year
  Sex: Female
  Weight: 50 kg

DRUGS (1)
  1. CLIMARA [Suspect]
     Indication: PREMATURE MENOPAUSE
     Dosage: SEE IMAGE
     Route: 062

REACTIONS (7)
  - CHOLECYSTECTOMY [None]
  - DRUG INEFFECTIVE [None]
  - HOT FLUSH [None]
  - HYPERHIDROSIS [None]
  - HYSTEROSALPINGO-OOPHORECTOMY [None]
  - MOOD SWINGS [None]
  - WEIGHT FLUCTUATION [None]
